FAERS Safety Report 20093644 (Version 2)
Quarter: 2021Q4

REPORT INFORMATION
  Report Type: Spontaneous
  Country: US (occurrence: US)
  Receive Date: 20211121
  Receipt Date: 20211130
  Transmission Date: 20220304
  Serious: Yes (Other)
  Sender: FDA-Public Use
  Company Number: US-SA-2021SA384057

PATIENT

DRUGS (2)
  1. LIBTAYO [Suspect]
     Active Substance: CEMIPLIMAB-RWLC
     Indication: Metastatic squamous cell carcinoma
     Dosage: 350 MG, Q3W
     Route: 042
  2. ACITRETIN [Concomitant]
     Active Substance: ACITRETIN
     Indication: Skin cancer
     Dosage: 10 MG, QD

REACTIONS (7)
  - Diplopia [Unknown]
  - Eyelid ptosis [Unknown]
  - Exophthalmos [Unknown]
  - Pneumonitis [Unknown]
  - Headache [Unknown]
  - Productive cough [Unknown]
  - Pruritus [Unknown]
